FAERS Safety Report 6361898-3 (Version None)
Quarter: 2009Q3

REPORT INFORMATION
  Report Type: 
  Country: None (occurrence: None)
  Receive Date: 20090918
  Receipt Date: 20090915
  Transmission Date: 20100115
  Serious: Yes (Death)
  Sender: FDA-Public Use
  Company Number: US-ASTRAZENECA-2009SE13268

PATIENT
  Age: 47 Year
  Sex: Female

DRUGS (5)
  1. SEROQUEL [Suspect]
  2. ARIPIPRAZOLE [Suspect]
  3. ESCITALOPRAM [Concomitant]
  4. TOPROL-XL [Concomitant]
  5. DECUSSATE [Concomitant]

REACTIONS (2)
  - CONSTIPATION [None]
  - FAECALOMA [None]
